FAERS Safety Report 9617131 (Version 1)
Quarter: 2013Q4

REPORT INFORMATION
  Report Type: Spontaneous
  Country: US (occurrence: US)
  Receive Date: 20131011
  Receipt Date: 20131011
  Transmission Date: 20140711
  Serious: Yes (Hospitalization)
  Sender: FDA-Public Use
  Company Number: US-BAYER-2013-123049

PATIENT
  Age: 26 Year
  Sex: Male

DRUGS (1)
  1. MAGNEVIST [Suspect]
     Indication: NUCLEAR MAGNETIC RESONANCE IMAGING BRAIN
     Dosage: UNK, ONCE
     Route: 042
     Dates: start: 20131010, end: 20131010

REACTIONS (3)
  - Dyspnoea [None]
  - Oxygen saturation decreased [None]
  - Tachycardia [None]
